FAERS Safety Report 5678235-X (Version None)
Quarter: 2008Q1

REPORT INFORMATION
  Report Type: 
  Country: None (occurrence: None)
  Receive Date: 20080325
  Receipt Date: 20080317
  Transmission Date: 20080703
  Serious: Yes (Other)
  Sender: FDA-Public Use
  Company Number: CA-JNJFOC-20071102672

PATIENT
  Sex: Female

DRUGS (11)
  1. EXTRA STRENGTH TYLENOL COLD DAYTIME [Suspect]
     Indication: INFLUENZA
     Route: 048
  2. EXTRA STRENGTH TYLENOL COLD DAYTIME [Suspect]
     Indication: NASOPHARYNGITIS
     Route: 048
  3. EXTRA STRENGTH TYLENOL COLD NIGHTTIME [Suspect]
     Indication: INFLUENZA
     Route: 048
  4. EXTRA STRENGTH TYLENOL COLD NIGHTTIME [Suspect]
     Indication: NASOPHARYNGITIS
     Route: 048
  5. PRAVASTATIN [Concomitant]
  6. DETROL [Concomitant]
  7. ALENDRONATE SODIUM [Concomitant]
  8. ASPIRIN [Concomitant]
  9. VITAMIN D [Concomitant]
  10. ASCORBIC ACID [Concomitant]
  11. VITAMIN B COMPLEX CAP [Concomitant]

REACTIONS (6)
  - ABDOMINAL PAIN UPPER [None]
  - ASTHENIA [None]
  - DIARRHOEA [None]
  - HOT FLUSH [None]
  - PNEUMONIA [None]
  - RECTAL HAEMORRHAGE [None]
